FAERS Safety Report 7499731-9 (Version None)
Quarter: 2011Q2

REPORT INFORMATION
  Report Type: 
  Country: None (occurrence: None)
  Receive Date: 20110524
  Receipt Date: 20110228
  Transmission Date: 20111010
  Serious: No
  Sender: FDA-Public Use
  Company Number: US-NOVEN-11US001871

PATIENT
  Age: 9 Year
  Sex: Male
  Weight: 27.664 kg

DRUGS (2)
  1. DAYTRANA [Suspect]
     Indication: ATTENTION DEFICIT/HYPERACTIVITY DISORDER
     Dosage: 7.5 MG, 1/2 PATCH
     Route: 062
     Dates: start: 20090101
  2. DAYTRANA [Suspect]
     Dosage: 7.5 MG, 1/2 PATCH
     Route: 062
     Dates: start: 20090101

REACTIONS (6)
  - WRONG TECHNIQUE IN DRUG USAGE PROCESS [None]
  - NO ADVERSE EVENT [None]
  - PRODUCT QUALITY ISSUE [None]
  - INCORRECT DOSE ADMINISTERED [None]
  - DRUG PRESCRIBING ERROR [None]
  - DRUG ADMINISTRATION ERROR [None]
